FAERS Safety Report 5409437-5 (Version None)
Quarter: 2007Q3

REPORT INFORMATION
  Report Type: 
  Country: None (occurrence: None)
  Receive Date: 20070808
  Receipt Date: 20070808
  Transmission Date: 20080115
  Serious: Yes (Other)
  Sender: FDA-Public Use
  Company Number: None

PATIENT
  Age: 55 Year
  Sex: Female
  Weight: 54.4316 kg

DRUGS (1)
  1. ACTONEL [Suspect]
     Indication: OSTEOPENIA
     Dosage: 35 MG ONCE A WEEK PO
     Route: 048
     Dates: start: 20020101, end: 20040101

REACTIONS (5)
  - ARTHRALGIA [None]
  - BONE PAIN [None]
  - CONDITION AGGRAVATED [None]
  - OSTEOPENIA [None]
  - OSTEOPOROSIS [None]
